FAERS Safety Report 8512580-5 (Version None)
Quarter: 2012Q3

REPORT INFORMATION
  Report Type: 
  Country: None (occurrence: None)
  Receive Date: 20120716
  Receipt Date: 20120706
  Transmission Date: 20120928
  Serious: Yes (Other)
  Sender: FDA-Public Use
  Company Number: US-BRISTOL-MYERS SQUIBB COMPANY-16625808

PATIENT
  Age: 72 Year
  Sex: Male
  Weight: 76 kg

DRUGS (2)
  1. ERBITUX [Suspect]
     Indication: COLON CANCER METASTATIC
     Dosage: SECOND INFUSION WAS ON 09MAY2012 :860 IV DOSE:860(UNITS NO.S).
     Route: 042
     Dates: start: 20120418
  2. IRINOTECAN HCL [Suspect]

REACTIONS (9)
  - ACNE PUSTULAR [None]
  - HYPOTENSION [None]
  - HAEMORRHAGE [None]
  - DYSPNOEA [None]
  - DIARRHOEA [None]
  - INFUSION RELATED REACTION [None]
  - FULL BLOOD COUNT DECREASED [None]
  - WEIGHT DECREASED [None]
  - RASH [None]
